FAERS Safety Report 7416207-5 (Version None)
Quarter: 2011Q2

REPORT INFORMATION
  Report Type: 
  Country: None (occurrence: None)
  Receive Date: 20110414
  Receipt Date: 20110405
  Transmission Date: 20111010
  Serious: Yes (Hospitalization)
  Sender: FDA-Public Use
  Company Number: US-JNJFOC-20101005710

PATIENT
  Sex: Female
  Weight: 57.15 kg

DRUGS (2)
  1. TYLENOL (CAPLET) [Suspect]
     Indication: NASOPHARYNGITIS
     Route: 048
  2. TYLENOL (CAPLET) [Suspect]
     Indication: PYREXIA
     Route: 048

REACTIONS (4)
  - OROPHARYNGEAL PAIN [None]
  - HYPERSENSITIVITY [None]
  - PRODUCT QUALITY ISSUE [None]
  - DYSPNOEA [None]
